FAERS Safety Report 4503690-8 (Version None)
Quarter: 2004Q4

REPORT INFORMATION
  Report Type: 
  Country: None (occurrence: None)
  Receive Date: 20041115
  Receipt Date: 20041109
  Transmission Date: 20050328
  Serious: Yes (Death)
  Sender: FDA-Public Use
  Company Number: 2004-122092-NL

PATIENT
  Age: 67 Year
  Sex: Male

DRUGS (7)
  1. VECURONIUM BROMIDE [Suspect]
     Indication: RESPIRATORY THERAPY
     Dosage: INTRAVENOUS DRIP
     Route: 041
     Dates: start: 20041102, end: 20041102
  2. NORADRENALINE [Suspect]
     Indication: SEPSIS
     Dosage: INTRAVENOUS DRIP
     Route: 041
     Dates: start: 20041101
  3. MIDAZOLAM HCL [Concomitant]
  4. MEROPENEM [Concomitant]
  5. GENTAMYCIN SULFATE [Concomitant]
  6. PANTOPRAZOLE [Concomitant]
  7. CALCIUM GLUCONATE [Concomitant]

REACTIONS (1)
  - DRUG INEFFECTIVE [None]
